FAERS Safety Report 13924413 (Version 1)
Quarter: 2017Q3

REPORT INFORMATION
  Report Type: Spontaneous
  Country: JP (occurrence: JP)
  Receive Date: 20170831
  Receipt Date: 20170831
  Transmission Date: 20171127
  Serious: Yes (Other)
  Sender: FDA-Public Use
  Company Number: PHJP2017JP026693

PATIENT
  Age: 48 Year
  Sex: Female

DRUGS (2)
  1. NEORAL [Suspect]
     Active Substance: CYCLOSPORINE
     Dosage: 100 MG, QD (2 CAPSULES OF 50 MG)
     Route: 048
  2. NEORAL [Suspect]
     Active Substance: CYCLOSPORINE
     Indication: APLASTIC ANAEMIA
     Dosage: 125 MG, (2 CAPSULES OF 50 MG AND 1 CAPSULE OF 25 MG)
     Route: 048

REACTIONS (10)
  - Glomerular filtration rate decreased [Unknown]
  - Genital haemorrhage [Unknown]
  - Weight decreased [Unknown]
  - Platelet count decreased [Unknown]
  - Product use in unapproved indication [Unknown]
  - Renal impairment [Unknown]
  - Blood creatinine increased [Unknown]
  - Red blood cell count decreased [Unknown]
  - Blood uric acid increased [Unknown]
  - Haemoglobin decreased [Unknown]
